FAERS Safety Report 23671220 (Version 1)
Quarter: 2024Q1

REPORT INFORMATION
  Report Type: Other
  Country: CA (occurrence: CA)
  Receive Date: 20240326
  Receipt Date: 20240326
  Transmission Date: 20240410
  Serious: Yes (Disabling, Other)
  Sender: FDA-Public Use
  Company Number: CA-INTERCEPT-PM2021002787

PATIENT
  Age: 74 Year
  Sex: Female

DRUGS (4)
  1. OCALIVA [Suspect]
     Active Substance: OBETICHOLIC ACID
     Indication: Primary biliary cholangitis
     Dosage: 5 MG, QD (OCALIVA)
     Route: 048
     Dates: start: 20210910
  2. OCALIVA [Suspect]
     Active Substance: OBETICHOLIC ACID
     Dosage: 5 MG (THREE TIMES PER WEEK, MONDAY, WEDNESDAY, AND FRIDAY)
     Route: 048
     Dates: start: 20211013
  3. OCALIVA [Suspect]
     Active Substance: OBETICHOLIC ACID
     Dosage: 5 MG (5 DAYS PER WEEK; MONDAY TO FRIDAY)
     Route: 048
     Dates: start: 20220506, end: 2023
  4. URSODIOL [Concomitant]
     Active Substance: URSODIOL
     Dosage: 1000 MG
     Dates: start: 2004

REACTIONS (10)
  - Pneumonia [Not Recovered/Not Resolved]
  - COVID-19 [Recovering/Resolving]
  - Liver injury [Unknown]
  - Weight decreased [Unknown]
  - Decreased appetite [Unknown]
  - Cough [Not Recovered/Not Resolved]
  - Abdominal pain upper [Unknown]
  - Fatigue [Unknown]
  - Pruritus [Unknown]
  - Liver function test increased [Unknown]

NARRATIVE: CASE EVENT DATE: 20210901
